FAERS Safety Report 17614055 (Version 2)
Quarter: 2020Q2

REPORT INFORMATION
  Report Type: Spontaneous
  Country: US (occurrence: US)
  Receive Date: 20200402
  Receipt Date: 20200403
  Transmission Date: 20200713
  Serious: No
  Sender: FDA-Public Use
  Company Number: US-SHIRE-US202011888

PATIENT
  Age: 54 Year
  Sex: Female
  Weight: 56.69 kg

DRUGS (1)
  1. VYVANSE [Suspect]
     Active Substance: LISDEXAMFETAMINE DIMESYLATE
     Indication: ATTENTION DEFICIT HYPERACTIVITY DISORDER
     Dosage: 70 MILLIGRAM, 1X/DAY:QD
     Route: 048

REACTIONS (5)
  - Unevaluable event [Not Recovered/Not Resolved]
  - Product physical issue [Unknown]
  - Product administration error [Unknown]
  - Drug ineffective [Not Recovered/Not Resolved]
  - Dry mouth [Recovered/Resolved]

NARRATIVE: CASE EVENT DATE: 20200316
